FAERS Safety Report 12687690 (Version 2)
Quarter: 2016Q3

REPORT INFORMATION
  Report Type: Spontaneous
  Country: US (occurrence: US)
  Receive Date: 20160825
  Receipt Date: 20160901
  Transmission Date: 20161109
  Serious: Yes (Other)
  Sender: FDA-Public Use
  Company Number: US-BEH-2016072915

PATIENT
  Sex: Female
  Weight: 110.2 kg

DRUGS (19)
  1. PRIVIGEN [Suspect]
     Active Substance: HUMAN IMMUNOGLOBULIN G
     Dosage: 10G AND 20 G DAILY FOR 2 CONSECUTIVE DAYS EVERY 4 WEEKS
     Route: 065
  2. TOPAMAX [Concomitant]
     Active Substance: TOPIRAMATE
  3. POTASSIUM CHLORIDE. [Concomitant]
     Active Substance: POTASSIUM CHLORIDE
  4. LOTRONEX                           /01482801/ [Concomitant]
  5. PRIVIGEN [Suspect]
     Active Substance: HUMAN IMMUNOGLOBULIN G
     Indication: BRADYCARDIA
     Dosage: 10G AND 20 G DAILY FOR 2 CONSECUTIVE DAYS EVERY 4 WEEKS
     Route: 065
     Dates: start: 20160728
  6. PROTONIX [Concomitant]
     Active Substance: PANTOPRAZOLE SODIUM
  7. BYSTOLIC [Concomitant]
     Active Substance: NEBIVOLOL HYDROCHLORIDE
  8. CELLCEPT [Concomitant]
     Active Substance: MYCOPHENOLATE MOFETIL\MYCOPHENOLATE MOFETIL HYDROCHLORIDE
  9. ZOFRAN [Concomitant]
     Active Substance: ONDANSETRON HYDROCHLORIDE
  10. HYDROXYZINE PAMOATE. [Concomitant]
     Active Substance: HYDROXYZINE PAMOATE
  11. DICYCLOMINE                        /00068601/ [Concomitant]
     Active Substance: DICYCLOMINE HYDROCHLORIDE
  12. DESIPRAMINE [Concomitant]
     Active Substance: DESIPRAMINE
  13. NALTREXONE [Concomitant]
     Active Substance: NALTREXONE
  14. ROPINIROLE. [Concomitant]
     Active Substance: ROPINIROLE
  15. PLAVIX [Concomitant]
     Active Substance: CLOPIDOGREL BISULFATE
  16. CREON [Concomitant]
     Active Substance: PANCRELIPASE AMYLASE\PANCRELIPASE LIPASE\PANCRELIPASE PROTEASE
  17. TRAMADOL. [Concomitant]
     Active Substance: TRAMADOL
  18. AMBIEN [Concomitant]
     Active Substance: ZOLPIDEM TARTRATE
  19. NUVARING [Concomitant]
     Active Substance: ETHINYL ESTRADIOL\ETONOGESTREL

REACTIONS (1)
  - Meningitis aseptic [Unknown]
